FAERS Safety Report 16856508 (Version 1)
Quarter: 2019Q3

REPORT INFORMATION
  Report Type: Spontaneous
  Country: DE (occurrence: DE)
  Receive Date: 20190926
  Receipt Date: 20190926
  Transmission Date: 20191005
  Serious: Yes (Other)
  Sender: FDA-Public Use
  Company Number: PHHY2019DE222919

PATIENT
  Sex: Female

DRUGS (1)
  1. RAMIPRIL 1A PHARMA PLUS [Suspect]
     Active Substance: RAMIPRIL
     Indication: HYPERTENSION
     Dosage: 2 DF, QD (5 MG/12.5 MG)
     Route: 065

REACTIONS (1)
  - Arrhythmia [Recovered/Resolved]
